FAERS Safety Report 4850538-8 (Version None)
Quarter: 2005Q4

REPORT INFORMATION
  Report Type: 
  Country: None (occurrence: None)
  Receive Date: 20051208
  Receipt Date: 20051208
  Transmission Date: 20060501
  Serious: Yes (Hospitalization, Other)
  Sender: FDA-Public Use
  Company Number: None

PATIENT
  Sex: Female
  Weight: 79.5 kg

DRUGS (2)
  1. SANDOSTATIN LAR [Suspect]
     Indication: ANAL CANCER
     Dosage: SEE IMAGE
     Dates: start: 20050912, end: 20051005
  2. SANDOSTATIN LAR [Suspect]
     Indication: NEOPLASM
     Dosage: SEE IMAGE
     Dates: start: 20050912, end: 20051005

REACTIONS (3)
  - BACTERIAL INFECTION [None]
  - CATHETER SITE CELLULITIS [None]
  - FUNGAL INFECTION [None]
